FAERS Safety Report 9103918 (Version 1)
Quarter: 2013Q1

REPORT INFORMATION
  Report Type: Spontaneous
  Country: GB (occurrence: GB)
  Receive Date: 20130219
  Receipt Date: 20130219
  Transmission Date: 20140127
  Serious: Yes (Other)
  Sender: FDA-Public Use
  Company Number: GB-JNJFOC-20130206724

PATIENT
  Age: 66 Year
  Sex: Male

DRUGS (1)
  1. NICORETTE INHALER [Suspect]
     Indication: PRODUCT USED FOR UNKNOWN INDICATION
     Dosage: 12 CARTRIDGES PER MONTH
     Route: 065

REACTIONS (2)
  - Nicotine dependence [Unknown]
  - Incorrect drug administration duration [Unknown]
